FAERS Safety Report 7808863-4 (Version None)
Quarter: 2011Q4

REPORT INFORMATION
  Report Type: 
  Country: None (occurrence: None)
  Receive Date: 20111012
  Receipt Date: 20111006
  Transmission Date: 20120403
  Serious: Yes (Other)
  Sender: FDA-Public Use
  Company Number: GB-ROXANE LABORATORIES, INC.-2011-RO-01423RO

PATIENT
  Age: 25 Year
  Sex: Female

DRUGS (2)
  1. LIDOCAINE [Suspect]
     Indication: ANAESTHESIA
  2. ADRENALIN IN OIL INJ [Suspect]
     Indication: ANAESTHESIA

REACTIONS (5)
  - MYDRIASIS [None]
  - AMAUROSIS [None]
  - OPHTHALMOPLEGIA [None]
  - EYELID PTOSIS [None]
  - PALLOR [None]
